FAERS Safety Report 24322996 (Version 1)
Quarter: 2024Q3

REPORT INFORMATION
  Report Type: Spontaneous
  Country: NL (occurrence: NL)
  Receive Date: 20240916
  Receipt Date: 20240916
  Transmission Date: 20241016
  Serious: Yes (Life-Threatening, Other)
  Sender: GLAXOSMITHKLINE
  Company Number: None

PATIENT

DRUGS (4)
  1. SERETIDE [Suspect]
     Active Substance: FLUTICASONE PROPIONATE\SALMETEROL XINAFOATE
     Indication: Asthma
     Dosage: 1 DF  (1 OR 2X PER DAY)
     Route: 065
     Dates: start: 20231223, end: 20240323
  2. PREDNISONE [Suspect]
     Active Substance: PREDNISONE
     Indication: Pneumonia
     Dosage: 1 DF, BID (2X PER DAY)
     Route: 065
     Dates: start: 20231102
  3. ALBUTEROL [Concomitant]
     Active Substance: ALBUTEROL
     Indication: Product used for unknown indication
     Dosage: UNK (AEROSOL, 100 ?G/DOSES (MICROGRAM PER DOSES))
     Route: 065
  4. POLYETHYLENE GLYCOLS [Concomitant]
     Active Substance: POLYETHYLENE GLYCOLS
     Indication: Product used for unknown indication
     Dosage: UNK (POWDER FOR DRINK)
     Route: 065

REACTIONS (6)
  - Suicidal ideation [Recovering/Resolving]
  - Anxiety [Recovering/Resolving]
  - Sensory overload [Recovering/Resolving]
  - Aggression [Recovering/Resolving]
  - Psychotic behaviour [Recovering/Resolving]
  - Suspiciousness [Unknown]

NARRATIVE: CASE EVENT DATE: 20240101
